FAERS Safety Report 10009458 (Version 1)
Quarter: 2014Q1

REPORT INFORMATION
  Report Type: Report from Study
  Country: AU (occurrence: AU)
  Receive Date: 20140313
  Receipt Date: 20140313
  Transmission Date: 20141002
  Serious: Yes (Other)
  Sender: FDA-Public Use
  Company Number: PHHY2014AU030666

PATIENT
  Sex: Female

DRUGS (12)
  1. ACLASTA [Suspect]
     Indication: OSTEOPOROSIS
     Dosage: 5 MG
     Route: 042
     Dates: start: 20120307
  2. ACLASTA [Suspect]
     Dosage: 5 MG
     Route: 042
     Dates: start: 20130227
  3. ATENOLOL [Concomitant]
     Dosage: 0.5 DF, BID
  4. ASTRIX [Concomitant]
     Dosage: 1 DF, QD
  5. ELOCON [Concomitant]
     Dosage: 1 DF, QD / APPLY THIN LAYER ONCE DAILY
  6. KARVEA [Concomitant]
     Dosage: 1 DF, QD
  7. MOBIC [Concomitant]
     Dosage: 1 DF, QD
  8. OROXINE [Concomitant]
     Dosage: 1 DF, QD
  9. OSTELIN [Concomitant]
     Dosage: 1 DF, QD
  10. PANADOL OSTEO [Concomitant]
     Dosage: 2 DF, TID
  11. REFRESH TEARS PLUS [Concomitant]
     Dosage: 1-2 DROP IN EYE
  12. VAGIFEM [Suspect]
     Dosage: TWICE WEEKLY

REACTIONS (1)
  - Aortic stenosis [Unknown]
